FAERS Safety Report 10243688 (Version 1)
Quarter: 2014Q2

REPORT INFORMATION
  Report Type: Spontaneous
  Country: IN (occurrence: IN)
  Receive Date: 20140618
  Receipt Date: 20140618
  Transmission Date: 20141212
  Serious: Yes (Hospitalization)
  Sender: FDA-Public Use
  Company Number: IN-MYLANLABS-2014S1013924

PATIENT
  Age: 5 Decade
  Sex: Male

DRUGS (4)
  1. KETAMINE [Suspect]
     Indication: DRUG ABUSE
     Dosage: 1 G/DAY, THEN INCREASED
     Route: 042
  2. KETAMINE [Suspect]
     Indication: OFF LABEL USE
     Dosage: 1 G/DAY, THEN INCREASED
     Route: 042
  3. KETAMINE [Suspect]
     Indication: DRUG ABUSE
     Dosage: 4 G/DAY, SOMETIMES AS OFTEN AS HOURLY
     Route: 042
  4. KETAMINE [Suspect]
     Indication: OFF LABEL USE
     Dosage: 4 G/DAY, SOMETIMES AS OFTEN AS HOURLY
     Route: 042

REACTIONS (5)
  - Drug abuse [Recovered/Resolved]
  - Drug dependence [Recovered/Resolved]
  - Drug withdrawal syndrome [Recovered/Resolved]
  - Skin infection [Unknown]
  - Dermatitis allergic [Unknown]
